FAERS Safety Report 8789404 (Version 2)
Quarter: 2012Q4

REPORT INFORMATION
  Report Type: 
  Country: US (occurrence: None)
  Receive Date: 20120905
  Receipt Date: 20121005
  Transmission Date: 20130627
  Serious: Yes (Other)
  Sender: FDA-Public Use
  Company Number: AUR-APL-2012-03748

PATIENT
  Age: 54 Year
  Sex: Female
  Weight: 109 kg

DRUGS (13)
  1. VENLAFAXINE [Suspect]
     Indication: DEPRESSION
  2. EFFEXOR [Suspect]
     Indication: DEPRESSION
     Route: 048
     Dates: start: 2004
  3. EFFEXOR [Suspect]
     Indication: DEPRESSION
     Route: 048
  4. EFFEXOR [Suspect]
     Indication: DEPRESSION
  5. EFFEXOR [Suspect]
     Indication: DEPRESSION
     Route: 048
  6. EFFEXOR [Suspect]
     Indication: DEPRESSION
  7. COZAAR (LOSARTAN POTASSIUM) [Concomitant]
  8. HYDROCHLOROTHIAZIDE [Concomitant]
  9. OMEPRAZOLE (OMEPRAZOLE) [Concomitant]
  10. ASPIRIN (ACETYLSALICYLIC ACID) [Concomitant]
  11. VITAMIN D (ERGOCALCIFEROL) [Concomitant]
  12. CALCIUM (CALCIUM) [Concomitant]
  13. MULTIVITAMINS (MULTIVITAMINS) [Concomitant]

REACTIONS (6)
  - Diabetes mellitus [None]
  - Blood cholesterol abnormal [None]
  - Thyroid disorder [None]
  - Agitation [None]
  - Drug ineffective [None]
  - Product substitution issue [None]
